FAERS Safety Report 25799603 (Version 2)
Quarter: 2025Q3

REPORT INFORMATION
  Report Type: Spontaneous
  Country: US (occurrence: US)
  Receive Date: 20250914
  Receipt Date: 20250925
  Transmission Date: 20251021
  Serious: Yes (Other)
  Sender: AUROBINDO
  Company Number: US-AUROBINDO-AUR-APL-2025-045891

PATIENT
  Age: 8 Decade
  Sex: Female

DRUGS (16)
  1. LISINOPRIL [Suspect]
     Active Substance: LISINOPRIL
     Indication: Hypertension
     Route: 065
  2. MEMANTINE [Suspect]
     Active Substance: MEMANTINE
     Indication: Dementia
     Route: 065
  3. OLANZAPINE [Suspect]
     Active Substance: OLANZAPINE
     Indication: Behaviour disorder
     Route: 065
  4. OLANZAPINE [Suspect]
     Active Substance: OLANZAPINE
     Indication: Mental disorder
  5. ESCITALOPRAM [Suspect]
     Active Substance: ESCITALOPRAM OXALATE
     Indication: Mental disorder
     Route: 065
  6. ESCITALOPRAM [Suspect]
     Active Substance: ESCITALOPRAM OXALATE
     Indication: Behaviour disorder
  7. NOVOLOG [Concomitant]
     Active Substance: INSULIN ASPART
     Indication: Product used for unknown indication
     Dosage: 34UNITS, TWO TIMES A DAY
     Route: 065
  8. DULAGLUTIDE [Concomitant]
     Active Substance: DULAGLUTIDE
     Indication: Product used for unknown indication
     Route: 065
  9. ASPIRIN [Concomitant]
     Active Substance: ASPIRIN
     Indication: Product used for unknown indication
     Route: 065
  10. BRIMONIDINE [Concomitant]
     Active Substance: BRIMONIDINE TARTRATE
     Indication: Product used for unknown indication
     Route: 065
  11. EVOLOCUMAB [Concomitant]
     Active Substance: EVOLOCUMAB
     Indication: Product used for unknown indication
     Route: 065
  12. SEMAGLUTIDE [Concomitant]
     Active Substance: SEMAGLUTIDE
     Indication: Hypertension
     Dosage: 0.25 MILLIGRAM, WEEKLY
     Route: 058
  13. SEMAGLUTIDE [Concomitant]
     Active Substance: SEMAGLUTIDE
     Route: 065
  14. SEMAGLUTIDE [Concomitant]
     Active Substance: SEMAGLUTIDE
     Dosage: 1 MILLIGRAM, EVERY WEEK
     Route: 065
  15. DONEPEZIL [Concomitant]
     Active Substance: DONEPEZIL
     Indication: Product used for unknown indication
     Route: 065
  16. INSULIN GLARGINE [Concomitant]
     Active Substance: INSULIN GLARGINE
     Indication: Product used for unknown indication
     Route: 065

REACTIONS (6)
  - Hypotension [Unknown]
  - Drug ineffective [Unknown]
  - Dementia [Unknown]
  - Urinary tract infection [Unknown]
  - Apathy [Unknown]
  - Neuropsychological symptoms [Unknown]
